FAERS Safety Report 14032566 (Version 1)
Quarter: 2017Q4

REPORT INFORMATION
  Report Type: Spontaneous
  Country: FR (occurrence: FR)
  Receive Date: 20171003
  Receipt Date: 20171003
  Transmission Date: 20180321
  Serious: Yes (Hospitalization)
  Sender: FDA-Public Use
  Company Number: FR-BAYER-2017-182643

PATIENT
  Age: 33 Year
  Sex: Female
  Weight: 98 kg

DRUGS (2)
  1. NICOTINE. [Concomitant]
     Active Substance: NICOTINE
  2. MIRENA [Suspect]
     Active Substance: LEVONORGESTREL
     Indication: CONTRACEPTION
     Dosage: 20 MCG/24HR, CONT
     Route: 015
     Dates: start: 20130201, end: 20170430

REACTIONS (5)
  - Headache [Not Recovered/Not Resolved]
  - Loss of libido [Not Recovered/Not Resolved]
  - Myocardial infarction [Not Recovered/Not Resolved]
  - Depression [Not Recovered/Not Resolved]
  - Paraesthesia [Not Recovered/Not Resolved]

NARRATIVE: CASE EVENT DATE: 20130320
